FAERS Safety Report 7754283-0 (Version None)
Quarter: 2011Q3

REPORT INFORMATION
  Report Type: 
  Country: None (occurrence: None)
  Receive Date: 20110915
  Receipt Date: 20110908
  Transmission Date: 20111222
  Serious: Yes (Hospitalization, Other)
  Sender: FDA-Public Use
  Company Number: SE-ELI_LILLY_AND_COMPANY-SE201109002542

PATIENT
  Age: 65 Year
  Sex: Male

DRUGS (5)
  1. FELODIPIN ACTAVIS [Concomitant]
  2. ARTHROTEC [Concomitant]
     Dosage: 50 MG, QD
     Route: 048
     Dates: start: 20080515, end: 20110809
  3. TENORMIN [Concomitant]
  4. METFORMIN ACTAVIS [Concomitant]
  5. BYETTA [Suspect]
     Dosage: 10 UG, BID
     Route: 058
     Dates: start: 20081031

REACTIONS (1)
  - CARDIAC FAILURE [None]
